FAERS Safety Report 5232656-8 (Version None)
Quarter: 2007Q1

REPORT INFORMATION
  Report Type: 
  Country: None (occurrence: None)
  Receive Date: 20070206
  Receipt Date: 20070206
  Transmission Date: 20070707
  Serious: Yes (Other)
  Sender: FDA-Public Use
  Company Number: None

PATIENT
  Sex: Male
  Weight: 103 kg

DRUGS (2)
  1. DOXERCALCIFEROL [Suspect]
     Indication: HYPERCALCAEMIA
     Dosage: 2MCG THREE TIMES WEEK IV
     Route: 042
     Dates: start: 20061002, end: 20061005
  2. DOXERCALCIFEROL [Suspect]
     Indication: HYPERCALCAEMIA
     Dosage: 2MCG THREE TIMES WEEK IV
     Route: 042
     Dates: start: 20061115, end: 20061122

REACTIONS (4)
  - BURNING SENSATION [None]
  - CHEST DISCOMFORT [None]
  - NO REACTION ON PREVIOUS EXPOSURE TO DRUG [None]
  - PARAESTHESIA [None]
